FAERS Safety Report 14405525 (Version 1)
Quarter: 2018Q1

REPORT INFORMATION
  Report Type: Spontaneous
  Country: US (occurrence: US)
  Receive Date: 20180118
  Receipt Date: 20180118
  Transmission Date: 20180509
  Serious: No
  Sender: FDA-Public Use
  Company Number: US-PFIZER INC-2018022173

PATIENT
  Age: 60 Year
  Sex: Male
  Weight: 61.23 kg

DRUGS (1)
  1. GENOTROPIN [Suspect]
     Active Substance: SOMATROPIN
     Indication: GROWTH HORMONE DEFICIENCY
     Dosage: 0.2 NOT SURE IF MG OR ML, INJECTION, ROTATED SITES AT THIGHS OR STOMACH AREA, ONCE A DAY AT NIGHT
     Dates: start: 2017, end: 201710

REACTIONS (2)
  - Breast tenderness [Recovered/Resolved]
  - Musculoskeletal stiffness [Unknown]

NARRATIVE: CASE EVENT DATE: 2017
